FAERS Safety Report 25754915 (Version 1)
Quarter: 2025Q3

REPORT INFORMATION
  Report Type: Spontaneous
  Country: JP (occurrence: JP)
  Receive Date: 20250903
  Receipt Date: 20250903
  Transmission Date: 20251020
  Serious: Yes (Other)
  Sender: RANBAXY
  Company Number: JP-SUN PHARMACEUTICAL INDUSTRIES LTD-2025R1-525677

PATIENT
  Age: 50 Year
  Sex: Female
  Weight: 91.4 kg

DRUGS (2)
  1. BETAMETHASONE [Suspect]
     Active Substance: BETAMETHASONE
     Indication: Benign familial pemphigus
     Dosage: 30 GRAM, DAILY
     Route: 065
  2. BETAMETHASONE [Suspect]
     Active Substance: BETAMETHASONE
     Dosage: 15 GRAM
     Route: 065

REACTIONS (2)
  - Cushing^s syndrome [Unknown]
  - Adrenal insufficiency [Unknown]
